FAERS Safety Report 8054575-4 (Version None)
Quarter: 2012Q1

REPORT INFORMATION
  Report Type: 
  Country: None (occurrence: None)
  Receive Date: 20120119
  Receipt Date: 20120109
  Transmission Date: 20120608
  Serious: Yes (Hospitalization, Other)
  Sender: FDA-Public Use
  Company Number: US-BIOGENIDEC-2010BI042591

PATIENT
  Age: 48 Year
  Sex: Female
  Weight: 93 kg

DRUGS (2)
  1. AVONEX [Suspect]
     Indication: MULTIPLE SCLEROSIS
     Route: 030
     Dates: start: 20010915, end: 20030801
  2. AVONEX [Suspect]
     Route: 030
     Dates: start: 20030801, end: 20100906

REACTIONS (17)
  - RENAL IMPAIRMENT [None]
  - DIZZINESS [None]
  - HYPOAESTHESIA [None]
  - IMPAIRED HEALING [None]
  - DEHYDRATION [None]
  - TRANSFUSION [None]
  - THROMBOSIS [None]
  - MULTIPLE SCLEROSIS RELAPSE [None]
  - RASH [None]
  - PERONEAL NERVE PALSY [None]
  - MUSCULAR WEAKNESS [None]
  - VERTIGO [None]
  - VOMITING [None]
  - TREMOR [None]
  - WOUND INFECTION STAPHYLOCOCCAL [None]
  - INTRA-ABDOMINAL HAEMANGIOMA [None]
  - DECUBITUS ULCER [None]
